FAERS Safety Report 7525649-9 (Version None)
Quarter: 2011Q2

REPORT INFORMATION
  Report Type: 
  Country: None (occurrence: None)
  Receive Date: 20110606
  Receipt Date: 20110524
  Transmission Date: 20111010
  Serious: Yes (Other)
  Sender: FDA-Public Use
  Company Number: PHHY2011US44549

PATIENT
  Sex: Male
  Weight: 90 kg

DRUGS (12)
  1. NYSTATIN [Concomitant]
     Dosage: 500 UKN, UNK
  2. PANTOPRAZOLE [Concomitant]
  3. MYFORTIC [Suspect]
     Indication: PROPHYLAXIS AGAINST TRANSPLANT REJECTION
     Dosage: 1260 MG
     Route: 048
     Dates: start: 20110101
  4. BACTRIM [Concomitant]
  5. XANAX [Concomitant]
  6. ASPIRIN [Concomitant]
     Dosage: 81 MG,
  7. PRAVASTATIN [Concomitant]
  8. VALCYTE [Concomitant]
     Dosage: 450 MG
  9. PROGRAF [Concomitant]
  10. PREDNISONE [Concomitant]
     Dosage: 5 MG
  11. MAGNESIUM OXIDE [Concomitant]
  12. CALCIUM CARBONATE [Concomitant]

REACTIONS (2)
  - INTRAOCULAR PRESSURE INCREASED [None]
  - VISION BLURRED [None]
